FAERS Safety Report 23238340 (Version 2)
Quarter: 2024Q3

REPORT INFORMATION
  Report Type: Spontaneous
  Country: IN (occurrence: IN)
  Receive Date: 20231129
  Receipt Date: 20240816
  Transmission Date: 20241017
  Serious: Yes (Hospitalization)
  Sender: IPCA
  Company Number: IN-IPCA LABORATORIES LIMITED-IPC-2023-IN-002061

PATIENT

DRUGS (1)
  1. WARFARIN [Suspect]
     Active Substance: WARFARIN
     Indication: Coronary artery disease
     Dosage: UNK
     Route: 065

REACTIONS (5)
  - Blood disorder [Recovering/Resolving]
  - Haemorrhage [Recovering/Resolving]
  - Haematuria [Recovering/Resolving]
  - Gingival bleeding [Recovering/Resolving]
  - Contusion [Recovering/Resolving]
